FAERS Safety Report 11573791 (Version 1)
Quarter: 2015Q3

REPORT INFORMATION
  Report Type: Other
  Country: US (occurrence: US)
  Receive Date: 20150929
  Receipt Date: 20150929
  Transmission Date: 20151125
  Serious: Yes (Hospitalization)
  Sender: FDA-Public Use
  Company Number: US-CONCORDIA PHARMACEUTICALS INC.-CO-PL-US-2015-274

PATIENT
  Age: 22 Year
  Sex: Female

DRUGS (3)
  1. HYDROXYCHLOROQUINE SULFATE. [Suspect]
     Active Substance: HYDROXYCHLOROQUINE SULFATE
     Indication: PRODUCT USED FOR UNKNOWN INDICATION
     Route: 048
  2. MELOXICAM. [Suspect]
     Active Substance: MELOXICAM
  3. TRAMADOL. [Suspect]
     Active Substance: TRAMADOL

REACTIONS (9)
  - Hypokalaemia [Recovered/Resolved]
  - Blood bicarbonate decreased [None]
  - Blood pressure decreased [None]
  - Seizure [None]
  - Electrocardiogram QT prolonged [None]
  - Toxicity to various agents [None]
  - Overdose [None]
  - Unresponsive to stimuli [None]
  - Sinus tachycardia [None]
